FAERS Safety Report 13885719 (Version 4)
Quarter: 2017Q4

REPORT INFORMATION
  Report Type: Report from Study
  Country: LB (occurrence: LB)
  Receive Date: 20170821
  Receipt Date: 20171109
  Transmission Date: 20180320
  Serious: Yes (Death, Hospitalization)
  Sender: FDA-Public Use
  Company Number: PHHY2017LB122746

PATIENT
  Age: 22 Year
  Sex: Female

DRUGS (1)
  1. AFINITOR [Suspect]
     Active Substance: EVEROLIMUS
     Indication: RENAL CELL CARCINOMA
     Dosage: 10 MG, QD
     Route: 048

REACTIONS (4)
  - Renal cell carcinoma [Fatal]
  - Intra-abdominal fluid collection [Unknown]
  - Malignant neoplasm progression [Fatal]
  - Vomiting [Unknown]

NARRATIVE: CASE EVENT DATE: 20170815
